FAERS Safety Report 5968876-4 (Version None)
Quarter: 2008Q4

REPORT INFORMATION
  Report Type: 
  Country: None (occurrence: None)
  Receive Date: 20081126
  Receipt Date: 20081124
  Transmission Date: 20090506
  Serious: Yes (Death)
  Sender: FDA-Public Use
  Company Number: BR-ABBOTT-08P-020-0489527-00

PATIENT
  Age: 16 Year
  Sex: Male

DRUGS (2)
  1. HUMIRA [Suspect]
     Indication: JUVENILE ARTHRITIS
     Dates: start: 20071101
  2. CYCLOSPORINE [Concomitant]
     Indication: DRUG INTOLERANCE

REACTIONS (6)
  - ASTHENIA [None]
  - HISTIOCYTOSIS HAEMATOPHAGIC [None]
  - INTERSTITIAL LUNG DISEASE [None]
  - PANCYTOPENIA [None]
  - RASH [None]
  - RESPIRATORY FAILURE [None]
